FAERS Safety Report 24203998 (Version 1)
Quarter: 2024Q3

REPORT INFORMATION
  Report Type: Spontaneous
  Country: US (occurrence: US)
  Receive Date: 20240813
  Receipt Date: 20240813
  Transmission Date: 20241016
  Serious: No
  Sender: TAKEDA
  Company Number: US-TAKEDA-2024TUS079656

PATIENT
  Age: 11 Year

DRUGS (1)
  1. EOHILIA [Suspect]
     Active Substance: BUDESONIDE
     Indication: Eosinophilic oesophagitis
     Dosage: 1 MILLIGRAM, QD
     Route: 065

REACTIONS (2)
  - No adverse event [Unknown]
  - Product prescribing error [Unknown]
